FAERS Safety Report 8962427 (Version 1)
Quarter: 2012Q4

REPORT INFORMATION
  Report Type: Spontaneous
  Country: US (occurrence: None)
  Receive Date: 20121205
  Receipt Date: 20121205
  Transmission Date: 20130627
  Serious: Yes (Other)
  Sender: FDA-Public Use
  Company Number: VAL_01025_2012

PATIENT
  Sex: Female

DRUGS (3)
  1. METOPROLOL [Suspect]
     Indication: HYPERTENSION
     Dosage: (before pregnancy)
     Route: 048
  2. METOPROLOL [Suspect]
     Indication: HYPERTENSION
     Dosage: [Regimen #2] (during pregnancy) (was titrated up)
     Route: 048
  3. METOPROLOL [Suspect]
     Indication: HYPERTENSION
     Dosage: [Regimen #3] (after pregnancy) (after 2 months postpartum)
     Route: 048

REACTIONS (2)
  - Blood pressure increased [None]
  - Exposure during pregnancy [None]
